FAERS Safety Report 8723769 (Version 3)
Quarter: 2012Q4

REPORT INFORMATION
  Report Type: 
  Country: JP (occurrence: JP)
  Receive Date: 20120815
  Receipt Date: 20121231
  Transmission Date: 20130627
  Serious: Yes (Other)
  Sender: FDA-Public Use
  Company Number: JP-MERCK-1208JPN004882

PATIENT
  Age: 61 Year
  Sex: Female
  Weight: 57 kg

DRUGS (21)
  1. PEGINTRON [Suspect]
     Indication: CHRONIC HEPATITIS C
     Dosage: 1 Microgram per kilogram, qw
     Route: 058
     Dates: start: 20120605, end: 20121114
  2. REBETOL [Suspect]
     Indication: CHRONIC HEPATITIS C
     Dosage: 400 mg, qd
     Route: 048
     Dates: start: 20120605
  3. REBETOL [Suspect]
     Dosage: 400 mg, qd
     Route: 048
     Dates: start: 20120622, end: 20120710
  4. REBETOL [Suspect]
     Dosage: 200 mg, qd
     Route: 048
     Dates: start: 20120711, end: 20121002
  5. REBETOL [Suspect]
     Dosage: 400 mg, qd
     Route: 048
     Dates: start: 20121003, end: 20121114
  6. TELAVIC [Suspect]
     Indication: CHRONIC HEPATITIS C
     Dosage: 1500 mg, qd
     Route: 048
     Dates: start: 20120605, end: 20120617
  7. TELAVIC [Suspect]
     Dosage: 1000 mg, qd
     Route: 048
     Dates: start: 20120622, end: 20120807
  8. TELAVIC [Suspect]
     Dosage: 1500 mg,qd
     Route: 048
     Dates: start: 20120808, end: 20120814
  9. TELAVIC [Suspect]
     Dosage: 1000 mg, qd
     Route: 048
     Dates: start: 20120815, end: 20120829
  10. NORVASC [Concomitant]
     Indication: HYPERTENSION
     Dosage: 5 mg, qd,formuation:POR
     Route: 048
  11. FUROSEMIDE [Concomitant]
     Indication: HYPERTENSION
     Dosage: 80 mg, qd,formulation:POR
     Route: 048
  12. MACACY [Concomitant]
     Indication: HYPERTENSION
     Dosage: 25 mg, qd,formulation:POR
     Route: 048
     Dates: end: 20120626
  13. MAGLAX (MAGNESIUM OXIDE) [Concomitant]
     Indication: CONSTIPATION
     Dosage: 1500 mg, qd,formulation:POR
     Route: 048
  14. PURSENNID (SENNA) [Concomitant]
     Indication: CONSTIPATION
     Dosage: 24 mg, qd,formulation:POR
     Route: 048
  15. RANITAC [Concomitant]
     Indication: GASTRIC ULCER
     Dosage: 150 mg, qd, formulation and route of administration unknown
  16. MARZULENE-S [Concomitant]
     Indication: GASTRIC ULCER
     Dosage: 2 g, qd,formulation and route :unknown
  17. CLARITIN REDITABS [Concomitant]
     Indication: PROPHYLAXIS
     Dosage: 10 mg, qd,formulation:POR
     Route: 048
  18. EPADEL [Concomitant]
     Indication: HYPERLIPIDAEMIA
     Dosage: 1800 mg, qd,formulation:POR
     Route: 048
  19. ZETIA [Concomitant]
     Indication: HYPERLIPIDAEMIA
     Dosage: 10 mg, qd,formulation:POR
     Route: 048
  20. LIVALO [Concomitant]
     Indication: HYPERLIPIDAEMIA
     Dosage: 1 mg, qd,formulation:POR
     Route: 048
  21. FEROTYM [Concomitant]
     Indication: IRON DEFICIENCY ANAEMIA
     Dosage: 100 mg, qd,formulation:POR
     Route: 048

REACTIONS (3)
  - Anaemia [Not Recovered/Not Resolved]
  - Anaemia [Not Recovered/Not Resolved]
  - Anaemia [Not Recovered/Not Resolved]
